FAERS Safety Report 15964546 (Version 1)
Quarter: 2019Q1

REPORT INFORMATION
  Report Type: Spontaneous
  Country: KE (occurrence: KE)
  Receive Date: 20190215
  Receipt Date: 20190215
  Transmission Date: 20190417
  Serious: Yes (Death)
  Sender: FDA-Public Use
  Company Number: PHHY2019KE035119

PATIENT

DRUGS (1)
  1. UPERIO [Suspect]
     Active Substance: SACUBITRIL\VALSARTAN
     Indication: CARDIAC FAILURE
     Dosage: 50 MG, Q12H
     Route: 048
     Dates: start: 20181020

REACTIONS (1)
  - Death [Fatal]
